FAERS Safety Report 9319311 (Version 1)
Quarter: 2013Q2

REPORT INFORMATION
  Report Type: Report from Study
  Country: UA (occurrence: UA)
  Receive Date: 20130530
  Receipt Date: 20130530
  Transmission Date: 20140414
  Serious: Yes (Hospitalization)
  Sender: FDA-Public Use
  Company Number: UA-TEVA-348399ISR

PATIENT
  Age: 39 Year
  Sex: Female
  Weight: 62 kg

DRUGS (10)
  1. TL011 [Suspect]
     Indication: DIFFUSE LARGE B-CELL LYMPHOMA
     Dosage: DOUBLE BLIND: TL011  IV VS. MABTHERA
     Route: 042
     Dates: start: 20111129, end: 20120424
  2. MABTHERA [Suspect]
     Indication: DIFFUSE LARGE B-CELL LYMPHOMA
     Dosage: DOUBLE BLIND: TL011 VS. MABTHERA
     Route: 042
     Dates: start: 20111129, end: 20120424
  3. VINCRISTINE [Suspect]
     Dates: start: 20120424
  4. DOXORUBICIN [Suspect]
     Dates: start: 20120424
  5. CYCLOPHOSPHAMIDE [Suspect]
     Dates: start: 20120424
  6. ALLOPURINOL [Concomitant]
     Indication: TUMOUR LYSIS SYNDROME
     Dosage: 300 MILLIGRAM DAILY;
     Route: 048
     Dates: start: 20111110
  7. ACYCLOVIR [Concomitant]
     Indication: TUMOUR LYSIS SYNDROME
     Dosage: 1200 MILLIGRAM DAILY;
     Route: 048
     Dates: start: 20111130
  8. DIALIPON [Concomitant]
     Indication: PROPHYLAXIS
     Dosage: 600 MILLIGRAM DAILY;
     Route: 042
     Dates: start: 20120403
  9. DIALIPON [Concomitant]
     Dosage: 600 MILLIGRAM DAILY;
     Route: 048
     Dates: start: 20120408
  10. URSOFALK [Concomitant]
     Dosage: 250 MILLIGRAM DAILY;
     Route: 048
     Dates: start: 20120403

REACTIONS (3)
  - Proteinuria [Recovered/Resolved]
  - Anaemia [Recovered/Resolved]
  - Fatigue [Recovered/Resolved]
